FAERS Safety Report 7938408-X (Version None)
Quarter: 2011Q4

REPORT INFORMATION
  Report Type: 
  Country: None (occurrence: None)
  Receive Date: 20111123
  Receipt Date: 20111118
  Transmission Date: 20120403
  Serious: Yes (Other)
  Sender: FDA-Public Use
  Company Number: US-PFIZER INC-2011279979

PATIENT
  Sex: Female

DRUGS (2)
  1. AVAPRO [Concomitant]
     Indication: HYPERTENSION
     Dosage: 75 MG, UNK
  2. CELEBREX [Suspect]
     Indication: BACK DISORDER
     Dosage: 200 MG, 1X/DAY
     Route: 048
     Dates: start: 20111107, end: 20111115

REACTIONS (1)
  - DIARRHOEA [None]
